FAERS Safety Report 8632139 (Version 3)
Quarter: 2014Q1

REPORT INFORMATION
  Report Type: Spontaneous
  Country: US (occurrence: US)
  Receive Date: 20120625
  Receipt Date: 20140128
  Transmission Date: 20141002
  Serious: Yes (Hospitalization, Other)
  Sender: FDA-Public Use
  Company Number: US-BAYER-2012-060970

PATIENT
  Age: 23 Year
  Sex: Female

DRUGS (16)
  1. YAZ [Suspect]
  2. MULTIVITAMINS [Concomitant]
     Dosage: UNK
     Route: 048
     Dates: start: 20110616, end: 20110812
  3. PERCOCET [Concomitant]
     Indication: PAIN
  4. DILAUDID [Concomitant]
  5. MOTRIN [Concomitant]
     Dosage: 400 MG,Q6H PRN
     Route: 048
  6. CIPROFLOXACIN [Concomitant]
     Dosage: 750 MG Q12H,
  7. AZITHROMYCIN [Concomitant]
  8. CEFTRIAXONE [Concomitant]
     Dosage: 1 G, DAILY
     Route: 042
     Dates: start: 20110908, end: 20110912
  9. ACETAMINOPHEN [Concomitant]
     Indication: PAIN
     Dosage: 650 MG, EVERY 6 HOURS AS NEEDED
     Route: 048
  10. ACETAMINOPHEN [Concomitant]
     Indication: PYREXIA
  11. ESOMEPRAZOLE [Concomitant]
     Dosage: 40 MG, EVERY MORNING
  12. IBUPROFEN [Concomitant]
     Indication: PYREXIA
     Dosage: 400 MG, EVERY 6 HOURS AS NEEDED
     Route: 048
  13. IBUPROFEN [Concomitant]
     Indication: PAIN
  14. POLYETHYLENE GLYCOL [Concomitant]
     Indication: CONSTIPATION
     Dosage: 17 G, UNK
     Route: 048
  15. WARFARIN [Concomitant]
     Indication: PULMONARY EMBOLISM
  16. WARFARIN [Concomitant]
     Indication: THROMBOPHLEBITIS SUPERFICIAL

REACTIONS (10)
  - Pulmonary embolism [None]
  - Deep vein thrombosis [None]
  - Pulmonary embolism [None]
  - Thrombophlebitis superficial [None]
  - Injury [None]
  - Pain [None]
  - Anxiety [None]
  - Activities of daily living impaired [None]
  - Shock [None]
  - Pain [None]
